FAERS Safety Report 6444009-5 (Version None)
Quarter: 2009Q4

REPORT INFORMATION
  Report Type: 
  Country: None (occurrence: None)
  Receive Date: 20091116
  Receipt Date: 20091116
  Transmission Date: 20100525
  Serious: Yes (Other)
  Sender: FDA-Public Use
  Company Number: None

PATIENT
  Age: 49 Year
  Sex: Male

DRUGS (1)
  1. MALARONE [Suspect]
     Indication: PROPHYLAXIS
     Dosage: 250/100 DAILY PO
     Route: 048
     Dates: start: 20050701, end: 20050723

REACTIONS (2)
  - ABNORMAL DREAMS [None]
  - HALLUCINATION [None]
